FAERS Safety Report 17912541 (Version 5)
Quarter: 2023Q4

REPORT INFORMATION
  Report Type: Spontaneous
  Country: IT (occurrence: IT)
  Receive Date: 20200618
  Receipt Date: 20231229
  Transmission Date: 20240109
  Serious: Yes (Death, Hospitalization)
  Sender: FDA-Public Use
  Company Number: IT-ROCHE-2609084

PATIENT
  Age: 66 Year
  Sex: Female
  Weight: 57 kg

DRUGS (17)
  1. PROLIA [Suspect]
     Active Substance: DENOSUMAB
     Indication: Product used for unknown indication
     Dosage: UNK
     Route: 065
     Dates: start: 20190529, end: 20191206
  2. HERCEPTIN [Suspect]
     Active Substance: TRASTUZUMAB
     Indication: HER2 positive breast cancer
     Dosage: 470 MILLIGRAM, Q3WK/ MOST RECENT DOSE PRIOR TO EVENT 19/APR/2019
     Route: 042
     Dates: start: 20170727
  3. NAVELBINE [Suspect]
     Active Substance: VINORELBINE TARTRATE
     Indication: HER2 positive breast cancer
     Dosage: 35 MILLIGRAM/ MOST RECENT DOSE RECEIVED ON 20/JUN/2019
     Route: 042
     Dates: start: 20190327, end: 20190620
  4. TAXOTERE [Suspect]
     Active Substance: DOCETAXEL
     Indication: HER2 positive breast cancer
     Dosage: 110 MILLIGRAM, Q3WK/ MOST RECENT DOSE RECEIVED ON 08/FEB/2018
     Route: 042
     Dates: start: 20170727
  5. TYKERB [Suspect]
     Active Substance: LAPATINIB DITOSYLATE
     Indication: HER2 positive breast cancer
     Dosage: 1000 MILLIGRAM, QD/ MOST RECENT DOSE RECEIVED ON 26/MAR/2019
     Route: 048
     Dates: start: 20181219
  6. GEMZAR [Suspect]
     Active Substance: GEMCITABINE HYDROCHLORIDE
     Indication: HER2 positive breast cancer
     Dosage: 1400 MILLIGRAM/ MOST RECENT DOSE RECEIVED ON 28/FEB/2020
     Route: 042
     Dates: start: 20190627
  7. PERJETA [Suspect]
     Active Substance: PERTUZUMAB
     Indication: HER2 positive breast cancer
     Dosage: 840 MILLIGRAM, Q3WK/ MOST RECENT DOSE PRIOR TO EVENT: 17/JAN/2018
     Route: 042
     Dates: start: 20170727
  8. XELODA [Suspect]
     Active Substance: CAPECITABINE
     Indication: Breast cancer
     Dosage: 2500 MILLIGRAM/ MOST RECENT DOSE RECEIVED ON 26/MAR/2019
     Route: 048
     Dates: start: 20181219, end: 20190326
  9. KADCYLA [Suspect]
     Active Substance: ADO-TRASTUZUMAB EMTANSINE
     Indication: HER2 positive breast cancer
     Dosage: 190 MILLIGRAM, Q3WK/ MOST RECENT DOSE PRIOR TO THE EVENT: 24/AUG/2018
     Route: 042
     Dates: start: 20180706
  10. BARNIDIPINE HYDROCHLORIDE [Concomitant]
     Active Substance: BARNIDIPINE HYDROCHLORIDE
     Dosage: UNK
     Dates: end: 20190704
  11. CHLORPHENIRAMINE MALEATE [Concomitant]
     Active Substance: CHLORPHENIRAMINE MALEATE
     Dosage: UNK
     Dates: start: 20170727
  12. RANITIDINE [Concomitant]
     Active Substance: RANITIDINE
     Dosage: UNK
     Dates: start: 20170727
  13. METOCLOPRAMIDE [Concomitant]
     Active Substance: METOCLOPRAMIDE
     Dosage: UNK
     Dates: start: 20170727
  14. DEXAMETHASONE [Concomitant]
     Active Substance: DEXAMETHASONE
     Dosage: UNK
     Dates: start: 20170727, end: 20190927
  15. GRANISETRON [Concomitant]
     Active Substance: GRANISETRON
     Dosage: UNK
     Dates: start: 20170727, end: 20200220
  16. HYDROCHLOROTHIAZIDE\IRBESARTAN [Concomitant]
     Active Substance: HYDROCHLOROTHIAZIDE\IRBESARTAN
     Dosage: UNK
     Dates: end: 20190718
  17. BISOPROLOL [Concomitant]
     Active Substance: BISOPROLOL\BISOPROLOL FUMARATE
     Dosage: UNK
     Dates: start: 20190704, end: 20200329

REACTIONS (2)
  - Breast cancer [Fatal]
  - Hypocalcaemia [Recovered/Resolved]

NARRATIVE: CASE EVENT DATE: 20190802
